FAERS Safety Report 6301510-2 (Version None)
Quarter: 2009Q3

REPORT INFORMATION
  Report Type: 
  Country: None (occurrence: None)
  Receive Date: 20090807
  Receipt Date: 20090729
  Transmission Date: 20100115
  Serious: Yes (Life-Threatening, Hospitalization)
  Sender: FDA-Public Use
  Company Number: B0586292A

PATIENT
  Sex: Male

DRUGS (11)
  1. ZOPHREN IV [Suspect]
     Indication: DRUG USE FOR UNKNOWN INDICATION
     Dosage: 8MG CYCLIC
     Route: 042
     Dates: start: 20081204
  2. ARACYTINE [Suspect]
     Dosage: 200MG CYCLIC
     Route: 042
     Dates: start: 20081204, end: 20081210
  3. BELUSTINE [Suspect]
     Dosage: 40MG CYCLIC
     Route: 048
     Dates: start: 20081204, end: 20081204
  4. AMLOR [Suspect]
     Dosage: 10MG PER DAY
     Route: 048
     Dates: start: 20081204, end: 20081208
  5. ATARAX [Suspect]
     Indication: DRUG USE FOR UNKNOWN INDICATION
     Route: 048
     Dates: start: 20081205, end: 20081210
  6. TAHOR [Suspect]
     Dosage: 1UNIT PER DAY
     Route: 048
     Dates: end: 20081210
  7. CIFLOX [Suspect]
     Indication: DRUG USE FOR UNKNOWN INDICATION
     Route: 048
     Dates: start: 20081204, end: 20081207
  8. DEXAMETHASONE [Concomitant]
     Route: 048
     Dates: start: 20081204, end: 20081209
  9. LASIX [Concomitant]
     Indication: DRUG USE FOR UNKNOWN INDICATION
     Route: 048
     Dates: start: 20081204, end: 20081208
  10. TAZOCILLINE [Concomitant]
     Indication: DRUG USE FOR UNKNOWN INDICATION
     Route: 042
     Dates: start: 20081204, end: 20081210
  11. INIPOMP [Concomitant]
     Indication: DRUG USE FOR UNKNOWN INDICATION
     Route: 065

REACTIONS (3)
  - CHEST PAIN [None]
  - MYOCARDIAL INFARCTION [None]
  - PANCYTOPENIA [None]
